FAERS Safety Report 7605039-0 (Version None)
Quarter: 2011Q3

REPORT INFORMATION
  Report Type: 
  Country: None (occurrence: None)
  Receive Date: 20110713
  Receipt Date: 20100128
  Transmission Date: 20111222
  Serious: No
  Sender: FDA-Public Use
  Company Number: 2010BI003365

PATIENT
  Sex: Male

DRUGS (1)
  1. TYSABRI [Suspect]
     Indication: MULTIPLE SCLEROSIS
     Route: 042
     Dates: start: 20090805, end: 20110526

REACTIONS (7)
  - MOBILITY DECREASED [None]
  - CONSTIPATION [None]
  - PROSTATOMEGALY [None]
  - URINARY TRACT DISORDER [None]
  - MUSCULAR WEAKNESS [None]
  - URINARY TRACT INFECTION [None]
  - DRY MOUTH [None]
